FAERS Safety Report 15123995 (Version 1)
Quarter: 2018Q3

REPORT INFORMATION
  Report Type: Report from Study
  Country: GB (occurrence: GB)
  Receive Date: 20180710
  Receipt Date: 20180710
  Transmission Date: 20181010
  Serious: Yes (Other)
  Sender: FDA-Public Use
  Company Number: GB-ROCHE-2065327

PATIENT
  Sex: Female

DRUGS (1)
  1. ROACTEMRA [Suspect]
     Active Substance: TOCILIZUMAB
     Indication: RHEUMATOID ARTHRITIS
     Route: 058
     Dates: start: 20160819

REACTIONS (7)
  - Liver function test abnormal [Unknown]
  - Blister [Unknown]
  - Pain [Unknown]
  - Pulmonary haemorrhage [Unknown]
  - Hepatic function abnormal [Unknown]
  - Pulmonary thrombosis [Unknown]
  - Condition aggravated [Unknown]
